FAERS Safety Report 7324563-1 (Version None)
Quarter: 2011Q1

REPORT INFORMATION
  Report Type: 
  Country: None (occurrence: None)
  Receive Date: 20110218
  Receipt Date: 20110210
  Transmission Date: 20110831
  Serious: Yes (Hospitalization)
  Sender: FDA-Public Use
  Company Number: A0913301A

PATIENT
  Age: 48 Year
  Sex: Female

DRUGS (1)
  1. ASPIRIN + CAFFEINE + SALICYLAMIDE (FORMULATION UNKNOWN) (ASPIRIN+CAFFE [Suspect]
     Indication: MIGRAINE
     Dosage: ORAL
     Route: 048

REACTIONS (8)
  - INFLUENZA LIKE ILLNESS [None]
  - DRUG ADMINISTRATION ERROR [None]
  - INCORRECT DOSE ADMINISTERED [None]
  - HYPOVENTILATION [None]
  - PNEUMONIA [None]
  - LUNG DISORDER [None]
  - RENAL IMPAIRMENT [None]
  - BLOOD PRESSURE DECREASED [None]
